FAERS Safety Report 6362179-4 (Version None)
Quarter: 2009Q3

REPORT INFORMATION
  Report Type: 
  Country: None (occurrence: None)
  Receive Date: 20090918
  Receipt Date: 20090914
  Transmission Date: 20100115
  Serious: Yes (Other)
  Sender: FDA-Public Use
  Company Number: US-JNJCH-2009024826

PATIENT
  Age: 78 Year
  Sex: Female
  Weight: 72.6 kg

DRUGS (1)
  1. BENGAY ULTRA STRENGTH [Suspect]
     Indication: MYALGIA
     Dosage: TEXT:ONCE AS DIRECTED
     Route: 061
     Dates: start: 20090908, end: 20090908

REACTIONS (4)
  - APPLICATION SITE BURN [None]
  - EXPIRED DRUG ADMINISTERED [None]
  - SKIN DISORDER [None]
  - SWELLING [None]
